FAERS Safety Report 8193109-0 (Version None)
Quarter: 2012Q1

REPORT INFORMATION
  Report Type: 
  Country: None (occurrence: None)
  Receive Date: 20120308
  Receipt Date: 20120308
  Transmission Date: 20120608
  Serious: Yes (Death, Life-Threatening)
  Sender: FDA-Public Use
  Company Number: None

PATIENT
  Age: 2 Year
  Sex: Male
  Weight: 20.411 kg

DRUGS (1)
  1. FENTANYL [Suspect]

REACTIONS (4)
  - WRONG TECHNIQUE IN DRUG USAGE PROCESS [None]
  - ACCIDENTAL DRUG INTAKE BY CHILD [None]
  - MEDICATION ERROR [None]
  - PRODUCT PHYSICAL ISSUE [None]
